FAERS Safety Report 5927259-3 (Version None)
Quarter: 2008Q4

REPORT INFORMATION
  Report Type: 
  Country: None (occurrence: None)
  Receive Date: 20081017
  Receipt Date: 20081008
  Transmission Date: 20090506
  Serious: Yes (Hospitalization)
  Sender: FDA-Public Use
  Company Number: 2008JP004030

PATIENT
  Age: 29 Year
  Sex: Male

DRUGS (5)
  1. TACROLIMUS [Suspect]
     Indication: BONE MARROW TRANSPLANT
     Dosage: 6 MG, D, ORAL, 3 MG, D, ORAL, 4 MG, D, ORAL
     Route: 048
     Dates: end: 20080826
  2. TACROLIMUS [Suspect]
     Indication: BONE MARROW TRANSPLANT
     Dosage: 6 MG, D, ORAL, 3 MG, D, ORAL, 4 MG, D, ORAL
     Route: 048
     Dates: start: 20080511
  3. CYTARABINE [Concomitant]
  4. MITOXANTRON (MITOXANTRONE HYDROCHLORIDE) [Concomitant]
  5. ETOPOSIDE [Concomitant]

REACTIONS (4)
  - EYE SWELLING [None]
  - PERICARDIAL EFFUSION [None]
  - PLEURAL EFFUSION [None]
  - RECURRENT CANCER [None]
